FAERS Safety Report 23400951 (Version 1)
Quarter: 2024Q1

REPORT INFORMATION
  Report Type: Spontaneous
  Country: SA (occurrence: SA)
  Receive Date: 20240115
  Receipt Date: 20240115
  Transmission Date: 20240410
  Serious: Yes (Death, Hospitalization)
  Sender: FDA-Public Use
  Company Number: SA-CHEPLA-2024000546

PATIENT
  Age: 49 Year
  Sex: Male

DRUGS (16)
  1. VALGANCICLOVIR [Suspect]
     Active Substance: VALGANCICLOVIR
     Indication: Cytomegalovirus infection
     Dosage: TWICE DAILY ?DAILY DOSE: 1800 MILLIGRAM
  2. GANCICLOVIR [Suspect]
     Active Substance: GANCICLOVIR
     Indication: Cytomegalovirus infection
     Dosage: 250 MG TWICE DAILY?DAILY DOSE: 500 MILLIGRAM
  3. PIPERACILLIN AND TAZOBACTAM [Suspect]
     Active Substance: PIPERACILLIN SODIUM\TAZOBACTAM SODIUM
     Indication: COVID-19 pneumonia
     Dosage: 4.5GM EVERY 6 H?DAILY DOSE: 27 GRAM
  4. AZITHROMYCIN [Suspect]
     Active Substance: AZITHROMYCIN
     Indication: COVID-19 pneumonia
     Dosage: DAILY DOSE: 500 MILLIGRAM
  5. CEFTAZIDIME [Suspect]
     Active Substance: CEFTAZIDIME
     Indication: Pseudomonas infection
     Dosage: DAILY DOSE: 6 GRAM
  6. COTRIMOXAZOLE [Suspect]
     Active Substance: SULFAMETHOXAZOLE\TRIMETHOPRIM
     Indication: Prophylaxis
     Dosage: 1 DOUBLE STRENGTH THREE TIMES PER WEEK
  7. COTRIMOXAZOLE [Suspect]
     Active Substance: SULFAMETHOXAZOLE\TRIMETHOPRIM
     Indication: Prophylaxis
     Dosage: 960 MG THREE TIMES WEEKLY
  8. COTRIMOXAZOLE [Suspect]
     Active Substance: SULFAMETHOXAZOLE\TRIMETHOPRIM
     Indication: Prophylaxis
     Dosage: THREE TIMES PER WEEK
  9. CIPROFLOXACIN [Suspect]
     Active Substance: CIPROFLOXACIN
     Dosage: 750 MG TWICE DAILY?DAILY DOSE: 1500 MILLIGRAM
  10. ETHAMBUTOL [Suspect]
     Active Substance: ETHAMBUTOL HYDROCHLORIDE
     Indication: Mycobacterial infection
     Dosage: DAILY DOSE: 1.2 GRAM
  11. CLARITHROMYCIN [Suspect]
     Active Substance: CLARITHROMYCIN
     Indication: Mycobacterial infection
     Dosage: 500 MG TWICE DAILY?DAILY DOSE: 1000 MILLIGRAM
  12. RIFAMPIN [Suspect]
     Active Substance: RIFAMPIN
     Indication: Mycobacterial infection
     Dosage: 600 MG ONCE DAILY?DAILY DOSE: 600 MILLIGRAM
  13. GENVOYA [Suspect]
     Active Substance: COBICISTAT\ELVITEGRAVIR\EMTRICITABINE\TENOFOVIR ALAFENAMIDE FUMARATE
  14. MEROPENEM [Suspect]
     Active Substance: MEROPENEM
     Dosage: DAILY DOSE: 3 GRAM
  15. VORICONAZOLE [Suspect]
     Active Substance: VORICONAZOLE
     Dosage: DAILY DOSE: 400 MILLIGRAM
  16. ASCORBIC ACID [Suspect]
     Active Substance: ASCORBIC ACID

REACTIONS (10)
  - Acute respiratory distress syndrome [Fatal]
  - Multiple organ dysfunction syndrome [Fatal]
  - Coagulopathy [Fatal]
  - Malacoplakia [Unknown]
  - Acute kidney injury [Unknown]
  - Anaemia [Unknown]
  - Weight decreased [Unknown]
  - Cough [Unknown]
  - Treatment noncompliance [Unknown]
  - Off label use [Unknown]

NARRATIVE: CASE EVENT DATE: 20210101
